FAERS Safety Report 7026452-9 (Version None)
Quarter: 2010Q4

REPORT INFORMATION
  Report Type: 
  Country: None (occurrence: None)
  Receive Date: 20101004
  Receipt Date: 20100930
  Transmission Date: 20110411
  Serious: Yes (Other)
  Sender: FDA-Public Use
  Company Number: FR-BRISTOL-MYERS SQUIBB COMPANY-15278245

PATIENT
  Age: 50 Year
  Sex: Male
  Weight: 75 kg

DRUGS (5)
  1. REYATAZ [Suspect]
     Indication: HIV INFECTION
     Dosage: DURATION:2-3 YEARS
     Route: 048
     Dates: start: 20050610
  2. NORVIR [Suspect]
     Indication: HIV INFECTION
     Route: 048
     Dates: start: 20080610
  3. KIVEXA [Suspect]
     Indication: HIV INFECTION
     Dosage: 1DF:1 TABLET
     Route: 048
     Dates: start: 20080610
  4. CRESTOR [Concomitant]
     Route: 048
     Dates: start: 20080801
  5. FOZITEC [Concomitant]
     Indication: HYPERTENSION
     Dosage: 1DF: HALF TABLET
     Route: 048
     Dates: start: 20080801

REACTIONS (2)
  - ANURIA [None]
  - NEPHROLITHIASIS [None]
